FAERS Safety Report 5063789-7 (Version None)
Quarter: 2006Q3

REPORT INFORMATION
  Report Type: 
  Country: None (occurrence: None)
  Receive Date: 20060703
  Receipt Date: 20060418
  Transmission Date: 20061208
  Serious: No
  Sender: FDA-Public Use
  Company Number: 2006S1003746

PATIENT
  Age: 43 Year
  Sex: Female
  Weight: 104.3273 kg

DRUGS (3)
  1. CLOZAPINE [Suspect]
     Indication: SCHIZOAFFECTIVE DISORDER
     Dosage: 800 MG; QD; PO
     Route: 048
     Dates: start: 20050801
  2. QUETIAPINE FUMARATE [Concomitant]
  3. BUPROPION HYDROCHLORIDE [Concomitant]

REACTIONS (1)
  - GRANULOCYTOPENIA [None]
